FAERS Safety Report 23093830 (Version 1)
Quarter: 2023Q4

REPORT INFORMATION
  Report Type: Spontaneous
  Country: US (occurrence: US)
  Receive Date: 20231023
  Receipt Date: 20231023
  Transmission Date: 20240109
  Serious: Yes (Hospitalization)
  Sender: FDA-Public Use
  Company Number: US-SPECGX-T202302027

PATIENT
  Sex: Female

DRUGS (2)
  1. POSACONAZOLE [Suspect]
     Active Substance: POSACONAZOLE
     Indication: Mucormycosis
     Dosage: UNK
     Route: 065
  2. AMPHOTERICIN B [Suspect]
     Active Substance: AMPHOTERICIN B
     Indication: Mucormycosis
     Dosage: UNK
     Route: 065

REACTIONS (8)
  - Respiratory failure [Unknown]
  - Mucormycosis [Unknown]
  - Disease progression [Unknown]
  - Pneumonia bacterial [Unknown]
  - Mechanical ventilation [Unknown]
  - Endotracheal intubation [Unknown]
  - Lung lobectomy [Unknown]
  - Drug ineffective for unapproved indication [Unknown]
